FAERS Safety Report 6266015-6 (Version None)
Quarter: 2009Q3

REPORT INFORMATION
  Report Type: 
  Country: None (occurrence: None)
  Receive Date: 20090709
  Receipt Date: 20090709
  Transmission Date: 20100115
  Serious: Yes (Other)
  Sender: FDA-Public Use
  Company Number: None

PATIENT
  Age: 58 Year
  Sex: Female
  Weight: 61.2356 kg

DRUGS (1)
  1. VERSED [Suspect]
     Indication: ORAL SURGERY
     Dosage: DURING SURGERY IV
     Route: 042
     Dates: start: 20090509, end: 20090509

REACTIONS (1)
  - MEMORY IMPAIRMENT [None]
